FAERS Safety Report 11783589 (Version 8)
Quarter: 2016Q2

REPORT INFORMATION
  Report Type: Spontaneous
  Country: CN (occurrence: CN)
  Receive Date: 20151127
  Receipt Date: 20160621
  Transmission Date: 20160815
  Serious: Yes (Other)
  Sender: FDA-Public Use
  Company Number: CN-009507513-1511CHN015170

PATIENT
  Age: 51 Year
  Sex: Female
  Weight: 71 kg

DRUGS (22)
  1. PEMETREXED DISODIUM [Concomitant]
     Active Substance: PEMETREXED DISODIUM
     Indication: CHEMOTHERAPY
     Dosage: TREATMENT REGIMEN: PEMP, 880MG, TREATMENT CYCLE: 1/UNK
     Route: 041
     Dates: start: 20151120, end: 20151120
  2. XIAO AI PING PIAN [Concomitant]
     Indication: LUNG ADENOCARCINOMA STAGE IV
     Dosage: 60 ML/CC, QD
     Route: 041
     Dates: start: 20151119, end: 20151119
  3. CISPLATIN. [Concomitant]
     Active Substance: CISPLATIN
     Indication: CHEMOTHERAPY
     Dosage: TREATMENT REGIMEN: PEMP, 120 MG, TREATMENT CYCLE 1/UNK
     Route: 041
     Dates: start: 20151120, end: 20151120
  4. EMEND [Suspect]
     Active Substance: APREPITANT
     Indication: PROPHYLAXIS OF NAUSEA AND VOMITING
     Dosage: 125 MG, ONCE ON DAY 1
     Route: 048
     Dates: start: 20151120, end: 20151120
  5. CELEBREX [Concomitant]
     Active Substance: CELECOXIB
     Dosage: TOTAL DAILY DOSE: 200 MG, FREQUENCY: Q12H
     Route: 048
     Dates: start: 20151120, end: 20151127
  6. DOMPERIDONE [Concomitant]
     Active Substance: DOMPERIDONE
     Indication: PROPHYLAXIS
     Dosage: 10 MG, TID
     Route: 048
     Dates: start: 20151120, end: 20151123
  7. TROPISETRON HYDROCHLORIDE [Concomitant]
     Active Substance: TROPISETRON HYDROCHLORIDE
     Indication: PROPHYLAXIS OF NAUSEA AND VOMITING
     Dosage: 5 MG, QD
     Route: 042
     Dates: start: 20151120, end: 20151121
  8. CALCIUM (UNSPECIFIED) (+) VITAMINS (UNSPECIFIED) [Concomitant]
     Active Substance: CALCIUM\VITAMINS
     Dosage: 600 MG QD
     Route: 048
     Dates: start: 20151120, end: 20151127
  9. CELEBREX [Concomitant]
     Active Substance: CELECOXIB
     Indication: PAIN
     Dosage: TOTAL DAILY DOSE: 200 MG, FREQUENCY: Q12H
     Route: 048
     Dates: start: 20151119, end: 20151119
  10. CYANOCOBALAMIN. [Concomitant]
     Active Substance: CYANOCOBALAMIN
     Indication: IMMUNE ENHANCEMENT THERAPY
     Dosage: 0.5 ML/CC, ONCE
     Route: 030
     Dates: start: 20151108, end: 20151108
  11. ASCORBIC ACID. [Concomitant]
     Active Substance: ASCORBIC ACID
     Indication: IMMUNE ENHANCEMENT THERAPY
     Dosage: 2 G, QD
     Route: 042
     Dates: start: 20151120, end: 20151121
  12. METOCLOPRAMIDE HYDROCHLORIDE. [Concomitant]
     Active Substance: METOCLOPRAMIDE HYDROCHLORIDE
     Indication: PROPHYLAXIS OF NAUSEA AND VOMITING
     Dosage: 10 MG, QD
     Route: 042
     Dates: start: 20151120, end: 20151121
  13. EMEND [Suspect]
     Active Substance: APREPITANT
     Dosage: 80 MG, ONCE ON DAY 3
     Route: 048
     Dates: start: 20151122, end: 20151122
  14. CALCIUM (UNSPECIFIED) (+) VITAMINS (UNSPECIFIED) [Concomitant]
     Active Substance: CALCIUM\VITAMINS
     Indication: OSTEOPOROSIS PROPHYLAXIS
     Dosage: 600 MG, QD
     Route: 048
     Dates: start: 20151119, end: 20151119
  15. DEXAMETHASONE. [Concomitant]
     Active Substance: DEXAMETHASONE
     Indication: PROPHYLAXIS OF NAUSEA AND VOMITING
     Dosage: UNK UNK, BID
     Route: 048
     Dates: start: 20151120, end: 20151121
  16. ESTAZOLAM. [Concomitant]
     Active Substance: ESTAZOLAM
     Indication: ANXIETY
     Dosage: 1 MG, QN
     Route: 048
     Dates: start: 20151120, end: 20151127
  17. HYDROTALCITE [Concomitant]
     Active Substance: HYDROTALCITE
     Indication: ANTACID THERAPY
     Dosage: 500 MG, TID
     Route: 048
     Dates: start: 20151120, end: 20151126
  18. EMEND [Suspect]
     Active Substance: APREPITANT
     Dosage: 80 MG, ONCE ON DAY 2
     Route: 048
     Dates: start: 20151121, end: 20151121
  19. PYRIDOXINE [Concomitant]
     Active Substance: PYRIDOXINE
     Indication: IMMUNE ENHANCEMENT THERAPY
     Dosage: 200 MG, QD
     Route: 042
     Dates: start: 20151120, end: 20151121
  20. XIAO AI PING PIAN [Concomitant]
     Dosage: STRENGTH: REPORTED AS ^20^, DOSE 60 ML/CC QD
     Route: 042
     Dates: start: 20151120, end: 20151125
  21. PANTOPRAZOLE SODIUM. [Concomitant]
     Active Substance: PANTOPRAZOLE SODIUM
     Indication: PROPHYLAXIS
     Dosage: 40 MG, QD
     Route: 042
     Dates: start: 20151120, end: 20151127
  22. POTASSIUM CHLORIDE. [Concomitant]
     Active Substance: POTASSIUM CHLORIDE
     Indication: MINERAL SUPPLEMENTATION
     Dosage: STRENGTH 10 ML/CC,10 ML/CC QD
     Route: 042
     Dates: start: 20151120, end: 20151121

REACTIONS (1)
  - Metastases to central nervous system [Not Recovered/Not Resolved]

NARRATIVE: CASE EVENT DATE: 20151120
